FAERS Safety Report 17827393 (Version 1)
Quarter: 2020Q2

REPORT INFORMATION
  Report Type: Report from Study
  Country: US (occurrence: US)
  Receive Date: 20200527
  Receipt Date: 20200527
  Transmission Date: 20200714
  Serious: Yes (Other)
  Sender: FDA-Public Use
  Company Number: US-BAUSCH-BL-2020-015040

PATIENT
  Age: 9 Decade
  Sex: Female
  Weight: 72.64 kg

DRUGS (3)
  1. ADVAIR HFA [Concomitant]
     Active Substance: FLUTICASONE PROPIONATE\SALMETEROL XINAFOATE
     Indication: PRODUCT USED FOR UNKNOWN INDICATION
     Route: 055
  2. APRISO [Suspect]
     Active Substance: MESALAMINE
     Indication: COLITIS ULCERATIVE
     Dosage: START: BEGINNING TO MID MAY/2019, 4 CAPSULES QD, STOPPED AT THE END OF MAR/2020 OR ON 01/APR/2020
     Route: 048
     Dates: start: 201905, end: 2020
  3. APRISO [Suspect]
     Active Substance: MESALAMINE
     Dosage: RESTARTED?END DATE: ABOUT A MONTH PRIOR TO DATE OF INITIAL REPORT
     Route: 048
     Dates: start: 2020, end: 202004

REACTIONS (5)
  - Malaise [Not Recovered/Not Resolved]
  - Colitis ulcerative [Not Recovered/Not Resolved]
  - Necrotising fasciitis [Recovered/Resolved]
  - Symptom recurrence [Not Recovered/Not Resolved]
  - Therapy interrupted [Unknown]

NARRATIVE: CASE EVENT DATE: 201905
